FAERS Safety Report 4503653-2 (Version None)
Quarter: 2004Q4

REPORT INFORMATION
  Report Type: 
  Country: None (occurrence: None)
  Receive Date: 20041115
  Receipt Date: 20041101
  Transmission Date: 20050328
  Serious: Yes (Hospitalization)
  Sender: FDA-Public Use
  Company Number: 2004-BP-11068NB

PATIENT
  Age: 62 Year

DRUGS (1)
  1. MICARDIS [Suspect]
     Dosage: 40 MG (NR) PO
     Route: 048

REACTIONS (1)
  - RENAL TUBULAR ACIDOSIS [None]
